FAERS Safety Report 7201233-1 (Version None)
Quarter: 2010Q4

REPORT INFORMATION
  Report Type: 
  Country: None (occurrence: None)
  Receive Date: 20101214
  Receipt Date: 20101206
  Transmission Date: 20110411
  Serious: Yes (Other)
  Sender: FDA-Public Use
  Company Number: 2010SP063623

PATIENT
  Age: 64 Year
  Sex: Female

DRUGS (8)
  1. TEMODAR [Suspect]
     Indication: BRAIN NEOPLASM MALIGNANT
     Dosage: 120 MG;HS;PO , 250 MG;HS;PO
     Route: 048
     Dates: start: 20100923, end: 20101103
  2. TEMODAR [Suspect]
     Indication: BRAIN NEOPLASM MALIGNANT
     Dosage: 120 MG;HS;PO , 250 MG;HS;PO
     Route: 048
     Dates: start: 20101203
  3. PAIN MEDICATION [Concomitant]
  4. DEXAMETHASONE [Concomitant]
  5. DILANTIN [Concomitant]
  6. DIAZEPAM [Concomitant]
  7. CLOTRIMAZOLE [Concomitant]
  8. SYNTHROID [Concomitant]

REACTIONS (2)
  - RASH PRURITIC [None]
  - SWELLING FACE [None]
